FAERS Safety Report 15576574 (Version 1)
Quarter: 2018Q4

REPORT INFORMATION
  Report Type: Spontaneous
  Country: US (occurrence: US)
  Receive Date: 20181101
  Receipt Date: 20181101
  Transmission Date: 20190205
  Serious: No
  Sender: FDA-Public Use
  Company Number: US-PFIZER INC-2018444730

PATIENT
  Age: 10 Year
  Sex: Female

DRUGS (1)
  1. EUCRISA [Suspect]
     Active Substance: CRISABOROLE
     Dosage: UNK (APPLY A THIN LAYER TOPICALLY TO AFFECTED AREA), 2X/DAY
     Route: 061

REACTIONS (3)
  - Condition aggravated [Unknown]
  - Erythema [Unknown]
  - Skin exfoliation [Unknown]
